FAERS Safety Report 9091089 (Version 1)
Quarter: 2013Q1

REPORT INFORMATION
  Report Type: Spontaneous
  Country: US (occurrence: US)
  Receive Date: 20130201
  Receipt Date: 20130201
  Transmission Date: 20140127
  Serious: No
  Sender: FDA-Public Use
  Company Number: US-009507513-1301USA011700

PATIENT
  Sex: Female

DRUGS (6)
  1. PEGINTRON [Suspect]
     Indication: HEPATITIS C
     Dosage: 150 MICROGRAM, QW
     Dates: start: 201207
  2. RIBASPHERE [Suspect]
     Dosage: UNK
  3. VICTRELIS [Suspect]
     Route: 048
  4. PROCRIT [Concomitant]
  5. CITALOPRAM [Concomitant]
  6. PREDNISONE [Concomitant]

REACTIONS (6)
  - Anaemia [Recovering/Resolving]
  - Feeling abnormal [Recovering/Resolving]
  - Urinary tract infection [Recovered/Resolved]
  - Anxiety [Recovering/Resolving]
  - Depression [Recovering/Resolving]
  - Product quality issue [Unknown]
